FAERS Safety Report 24865455 (Version 3)
Quarter: 2025Q1

REPORT INFORMATION
  Report Type: Spontaneous
  Country: JP (occurrence: JP)
  Receive Date: 20250121
  Receipt Date: 20250306
  Transmission Date: 20250409
  Serious: Yes (Hospitalization, Other)
  Sender: ASTELLAS
  Company Number: JP-ASTELLAS-2024-AER-019747

PATIENT
  Age: 87 Year
  Sex: Female
  Weight: 45 kg

DRUGS (13)
  1. PADCEV [Suspect]
     Active Substance: ENFORTUMAB VEDOTIN-EJFV
     Indication: Malignant neoplasm of renal pelvis
     Route: 042
     Dates: start: 20241108
  2. PADCEV [Suspect]
     Active Substance: ENFORTUMAB VEDOTIN-EJFV
     Indication: Ureteric cancer
  3. KEYTRUDA [Concomitant]
     Active Substance: PEMBROLIZUMAB
     Indication: Malignant neoplasm of renal pelvis
     Route: 042
     Dates: start: 20241108
  4. DEXAMETHASONE SODIUM PHOSPHATE [Concomitant]
     Active Substance: DEXAMETHASONE SODIUM PHOSPHATE
     Indication: Malignant neoplasm of renal pelvis
     Route: 042
     Dates: start: 20241108
  5. Oxycodone capsule [Concomitant]
     Indication: Pain in extremity
     Route: 048
     Dates: start: 20241106, end: 20250114
  6. Acelio injection [Concomitant]
     Indication: Malignant neoplasm of renal pelvis
     Route: 042
     Dates: start: 20241111, end: 20241202
  7. Acelio injection [Concomitant]
     Indication: Tumour associated fever
  8. MIROGABALIN BESYLATE [Concomitant]
     Active Substance: MIROGABALIN BESYLATE
     Indication: Pain in extremity
     Route: 048
     Dates: start: 20241113, end: 20250110
  9. Zicthoru Tapes patches [Concomitant]
     Indication: Pain in extremity
     Route: 062
     Dates: start: 20241115, end: 20250110
  10. Carbazochrome Sulfonate injection [Concomitant]
     Indication: Malignant neoplasm of renal pelvis
     Route: 042
     Dates: start: 20241117, end: 20241202
  11. Carbazochrome Sulfonate injection [Concomitant]
     Indication: Melaena
  12. TRANEXAMIC ACID [Concomitant]
     Active Substance: TRANEXAMIC ACID
     Indication: Malignant neoplasm of renal pelvis
     Route: 042
     Dates: start: 20241117, end: 20241202
  13. TRANEXAMIC ACID [Concomitant]
     Active Substance: TRANEXAMIC ACID
     Indication: Melaena

REACTIONS (3)
  - Tumour associated fever [Recovered/Resolved]
  - Melaena [Recovered/Resolved]
  - Respiratory failure [Recovered/Resolved]

NARRATIVE: CASE EVENT DATE: 20241111
